FAERS Safety Report 20612438 (Version 1)
Quarter: 2022Q1

REPORT INFORMATION
  Report Type: Spontaneous
  Country: NO (occurrence: NO)
  Receive Date: 20220318
  Receipt Date: 20220318
  Transmission Date: 20220423
  Serious: Yes (Other)
  Sender: FDA-Public Use
  Company Number: NO-ALLERGAN-2208931US

PATIENT
  Sex: Female
  Weight: 58 kg

DRUGS (2)
  1. NITROGLYCERIN [Suspect]
     Active Substance: NITROGLYCERIN
     Indication: Anal fissure
     Dosage: UNK, Q12H
     Route: 054
     Dates: start: 20210512, end: 202105
  2. HERBALS\PLANTAGO OVATA LEAF [Concomitant]
     Active Substance: HERBALS\PLANTAGO OVATA LEAF

REACTIONS (3)
  - Abortion spontaneous [Recovered/Resolved with Sequelae]
  - Uterine contractions during pregnancy [Unknown]
  - Pregnancy [Unknown]

NARRATIVE: CASE EVENT DATE: 20210501
